FAERS Safety Report 18401644 (Version 1)
Quarter: 2020Q4

REPORT INFORMATION
  Report Type: Spontaneous
  Country: US (occurrence: US)
  Receive Date: 20201019
  Receipt Date: 20201019
  Transmission Date: 20210114
  Serious: Yes (Death, Other)
  Sender: FDA-Public Use
  Company Number: US-TEVA-2020-US-1838506

PATIENT
  Sex: Female

DRUGS (15)
  1. DILAUDID [Suspect]
     Active Substance: HYDROMORPHONE HYDROCHLORIDE
     Route: 065
  2. METHADONE [Suspect]
     Active Substance: METHADONE HYDROCHLORIDE
     Route: 065
  3. CYCLOBENZAPRINE. [Suspect]
     Active Substance: CYCLOBENZAPRINE
     Route: 065
  4. MS CONTIN [Suspect]
     Active Substance: MORPHINE SULFATE
     Route: 065
  5. RYZOLT [Suspect]
     Active Substance: TRAMADOL HYDROCHLORIDE
     Route: 065
  6. BUPRENORPHINE. [Suspect]
     Active Substance: BUPRENORPHINE
     Route: 062
  7. FENTANYL. [Suspect]
     Active Substance: FENTANYL
     Route: 065
  8. OXYCODONE AND ACETAMINOPHEN [Suspect]
     Active Substance: ACETAMINOPHEN\OXYCODONE HYDROCHLORIDE
     Route: 065
  9. CITALOPRAM [Suspect]
     Active Substance: CITALOPRAM HYDROBROMIDE
     Route: 065
  10. HYDROMORPHONE IMMEDIATE RELEASE TABLETS [Suspect]
     Active Substance: HYDROMORPHONE
     Route: 065
  11. OXYIR [Suspect]
     Active Substance: OXYCODONE HYDROCHLORIDE
     Route: 065
  12. OXYCODONE EXTENDED RELEASE TABLETS [Suspect]
     Active Substance: OXYCODONE
     Route: 065
  13. MORPHINE [Suspect]
     Active Substance: MORPHINE
     Route: 065
  14. OXYCONTIN [Suspect]
     Active Substance: OXYCODONE HYDROCHLORIDE
     Route: 065
  15. BUTRANS [Suspect]
     Active Substance: BUPRENORPHINE
     Route: 065

REACTIONS (3)
  - Toxicity to various agents [Fatal]
  - Dependence [Unknown]
  - Loss of employment [Unknown]
